FAERS Safety Report 6451162-6 (Version None)
Quarter: 2009Q4

REPORT INFORMATION
  Report Type: 
  Country: None (occurrence: None)
  Receive Date: 20091123
  Receipt Date: 20090528
  Transmission Date: 20100525
  Serious: Yes (Other)
  Sender: FDA-Public Use
  Company Number: US-AMGEN-QUU333167

PATIENT
  Sex: Female
  Weight: 86.7 kg

DRUGS (5)
  1. ENBREL [Suspect]
     Indication: RHEUMATOID ARTHRITIS
     Route: 058
     Dates: start: 20080208, end: 20080801
  2. ENBREL [Suspect]
     Indication: OSTEOARTHRITIS
  3. REMICADE [Suspect]
     Dates: start: 20080801
  4. PAXIL [Concomitant]
  5. PROTONIX [Concomitant]

REACTIONS (2)
  - PAIN IN EXTREMITY [None]
  - SINUSITIS ASPERGILLUS [None]
